FAERS Safety Report 18665421 (Version 1)
Quarter: 2020Q4

REPORT INFORMATION
  Report Type: Spontaneous
  Country: JP (occurrence: JP)
  Receive Date: 20201225
  Receipt Date: 20201225
  Transmission Date: 20210114
  Serious: Yes (Hospitalization, Other)
  Sender: FDA-Public Use
  Company Number: JP-GLAXOSMITHKLINE-JP2020253127

PATIENT
  Age: 90 Year
  Sex: Female

DRUGS (1)
  1. VALTREX [Suspect]
     Active Substance: VALACYCLOVIR HYDROCHLORIDE
     Indication: HERPES ZOSTER
     Dosage: UNK
     Route: 048
     Dates: start: 20201122

REACTIONS (8)
  - Renal impairment [Recovered/Resolved]
  - Altered state of consciousness [Not Recovered/Not Resolved]
  - Unresponsive to stimuli [Unknown]
  - Gait inability [Not Recovered/Not Resolved]
  - Seizure [Not Recovered/Not Resolved]
  - Delirium [Not Recovered/Not Resolved]
  - Mental impairment [Not Recovered/Not Resolved]
  - Vomiting [Unknown]

NARRATIVE: CASE EVENT DATE: 20201122
